FAERS Safety Report 8939770 (Version 1)
Quarter: 2012Q4

REPORT INFORMATION
  Report Type: 
  Country: CA (occurrence: CA)
  Receive Date: 20121203
  Receipt Date: 20121203
  Transmission Date: 20130627
  Serious: No
  Sender: FDA-Public Use
  Company Number: CA-TEVA-373061USA

PATIENT
  Age: 20 Year
  Sex: Female

DRUGS (1)
  1. PLAN B [Suspect]
     Indication: CONTRACEPTION
     Dosage: 2
     Route: 048
     Dates: start: 20121121, end: 20121121

REACTIONS (3)
  - Metrorrhagia [Unknown]
  - Muscle spasms [Unknown]
  - Nausea [Unknown]
